FAERS Safety Report 8887626 (Version 1)
Quarter: 2012Q4

REPORT INFORMATION
  Report Type: Spontaneous
  Country: US (occurrence: None)
  Receive Date: 20121101
  Receipt Date: 20121101
  Transmission Date: 20130627
  Serious: No
  Sender: FDA-Public Use
  Company Number: None

PATIENT
  Age: 22 Year
  Sex: Female

DRUGS (2)
  1. LORYNA (DROSPIRENONE AND ETHINYL ESTRADIOL) [Suspect]
     Indication: ORAL CONTRACEPTIVE
     Dosage: 1 tablet once daily po
     Route: 048
     Dates: start: 20120918, end: 20121007
  2. LORYNA (DROSPIRENONE AND ETHINYL ESTRADIOL) [Suspect]
     Indication: ORAL CONTRACEPTIVE
     Dates: start: 20121014, end: 20121029

REACTIONS (2)
  - Fungal infection [None]
  - Product substitution issue [None]
